FAERS Safety Report 7634601-4 (Version None)
Quarter: 2011Q3

REPORT INFORMATION
  Report Type: 
  Country: None (occurrence: None)
  Receive Date: 20110725
  Receipt Date: 20110714
  Transmission Date: 20111222
  Serious: Yes (Death, Hospitalization)
  Sender: FDA-Public Use
  Company Number: US-AMGEN-KDC437360

PATIENT
  Age: 66 Year
  Sex: Female

DRUGS (6)
  1. PACLITAXEL [Concomitant]
     Dosage: 80 MG/M2, UNK
     Route: 042
     Dates: end: 20100624
  2. DOXORUBICIN HCL [Concomitant]
     Dosage: 60 MG/M2, UNK
     Route: 042
     Dates: start: 20100204, end: 20100325
  3. CYCLOPHOSPHAMIDE [Concomitant]
     Dosage: 600 MG/M2, UNK
     Route: 042
     Dates: start: 20100204, end: 20100325
  4. BEVACIZUMAB [Concomitant]
     Indication: BREAST CANCER
     Dosage: UNK UNK, UNK
     Route: 042
     Dates: start: 20100204, end: 20100617
  5. PEGFILGRASTIM [Suspect]
     Indication: BREAST CANCER
     Dosage: 6 MG, UNK
     Route: 042
     Dates: start: 20100204, end: 20100326
  6. DITROPAN [Concomitant]

REACTIONS (2)
  - CYSTITIS [None]
  - LEFT VENTRICULAR DYSFUNCTION [None]
